FAERS Safety Report 26154188 (Version 1)
Quarter: 2025Q4

REPORT INFORMATION
  Report Type: Spontaneous
  Country: CA (occurrence: CA)
  Receive Date: 20251215
  Receipt Date: 20251215
  Transmission Date: 20260117
  Serious: Yes (Death, Life-Threatening, Hospitalization, Disabling, Congenital Anomaly, Other)
  Sender: Haleon PLC
  Company Number: CA-HALEON-2278657

PATIENT
  Age: 43 Year
  Sex: Female
  Weight: 96 kg

DRUGS (278)
  1. VOLTAREN [Suspect]
     Active Substance: DICLOFENAC SODIUM
     Indication: Product used for unknown indication
     Dosage: ROUTE OF ADMINISTRATION: UNKNOWN
  2. FLONASE ALLERGY RELIEF [Suspect]
     Active Substance: FLUTICASONE PROPIONATE
     Indication: Product used for unknown indication
     Dosage: ROUTE OF ADMINISTRATION: UNKNOWN
  3. ACETAMINOPHEN [Suspect]
     Active Substance: ACETAMINOPHEN
     Indication: Product used for unknown indication
     Dosage: ROUTE OF ADMINISTRATION: UNKNOWN
  4. CELECOXIB [Suspect]
     Active Substance: CELECOXIB
     Indication: Product used for unknown indication
     Dosage: ROUTE OF ADMINISTRATION: UNKNOWN
  5. CELECOXIB [Suspect]
     Active Substance: CELECOXIB
     Dosage: ROUTE OF ADMINISTRATION: UNKNOWN
  6. CELECOXIB [Suspect]
     Active Substance: CELECOXIB
     Dosage: ROUTE OF ADMINISTRATION: UNKNOWN
  7. CELECOXIB [Suspect]
     Active Substance: CELECOXIB
     Dosage: ROUTE OF ADMINISTRATION: UNKNOWN
  8. CELECOXIB [Suspect]
     Active Substance: CELECOXIB
     Dosage: ROUTE OF ADMINISTRATION: UNKNOWN
  9. CELECOXIB [Suspect]
     Active Substance: CELECOXIB
     Dosage: ROUTE OF ADMINISTRATION: UNKNOWN
  10. CELECOXIB [Suspect]
     Active Substance: CELECOXIB
     Dosage: ROUTE OF ADMINISTRATION: UNKNOWN
  11. COSENTYX [Suspect]
     Active Substance: SECUKINUMAB
     Indication: Psoriatic arthropathy
     Dosage: ROUTE OF ADMINISTRATION: UNKNOWN
  12. COSENTYX [Suspect]
     Active Substance: SECUKINUMAB
     Indication: Psoriasis
  13. COSENTYX [Suspect]
     Active Substance: SECUKINUMAB
     Indication: Arthropathy
  14. COSENTYX [Suspect]
     Active Substance: SECUKINUMAB
     Dosage: ROUTE OF ADMINISTRATION: UNKNOWN
  15. COSENTYX [Suspect]
     Active Substance: SECUKINUMAB
     Dosage: ROUTE OF ADMINISTRATION: UNKNOWN
  16. DOMPERIDONE [Suspect]
     Active Substance: DOMPERIDONE
     Indication: Product used for unknown indication
     Dosage: ROUTE OF ADMINISTRATION: UNKNOWN
  17. DOMPERIDONE [Suspect]
     Active Substance: DOMPERIDONE
     Dosage: ROUTE OF ADMINISTRATION: UNKNOWN
  18. ERELZI [Suspect]
     Active Substance: ETANERCEPT-SZZS
     Indication: Rheumatoid arthritis
  19. ERELZI [Suspect]
     Active Substance: ETANERCEPT-SZZS
     Dosage: ROUTE OF ADMINISTRATION: UNKNOWN
  20. ERELZI [Suspect]
     Active Substance: ETANERCEPT-SZZS
     Route: 058
  21. ERELZI [Suspect]
     Active Substance: ETANERCEPT-SZZS
     Dosage: ROUTE OF ADMINISTRATION: UNKNOWN
  22. ERELZI [Suspect]
     Active Substance: ETANERCEPT-SZZS
     Dosage: ROUTE OF ADMINISTRATION: UNKNOWN
  23. ERELZI [Suspect]
     Active Substance: ETANERCEPT-SZZS
     Dosage: ROUTE OF ADMINISTRATION: UNKNOWN
  24. FINACEA [Suspect]
     Active Substance: AZELAIC ACID
     Indication: Product used for unknown indication
     Dosage: ROUTE OF ADMINISTRATION: UNKNOWN
  25. FINACEA [Suspect]
     Active Substance: AZELAIC ACID
     Dosage: ROUTE OF ADMINISTRATION: UNKNOWN
  26. FOLIC ACID [Suspect]
     Active Substance: FOLIC ACID
     Indication: Rheumatoid arthritis
     Dosage: ROUTE OF ADMINISTRATION: UNKNOWN
  27. FOLIC ACID [Suspect]
     Active Substance: FOLIC ACID
     Dosage: ROUTE OF ADMINISTRATION: UNKNOWN
  28. FOLIC ACID [Suspect]
     Active Substance: FOLIC ACID
     Dosage: ROUTE OF ADMINISTRATION: UNKNOWN
  29. FOLIC ACID [Suspect]
     Active Substance: FOLIC ACID
     Dosage: ROUTE OF ADMINISTRATION: UNKNOWN
  30. FOLIC ACID [Suspect]
     Active Substance: FOLIC ACID
     Dosage: ROUTE OF ADMINISTRATION: UNKNOWN
  31. FOLIC ACID [Suspect]
     Active Substance: FOLIC ACID
     Dosage: ROUTE OF ADMINISTRATION: UNKNOWN
  32. FOLIC ACID [Suspect]
     Active Substance: FOLIC ACID
     Dosage: ROUTE OF ADMINISTRATION: UNKNOWN
  33. FOLIC ACID [Suspect]
     Active Substance: FOLIC ACID
     Dosage: ROUTE OF ADMINISTRATION: UNKNOWN
  34. HYDROXYCHLOROQUINE [Suspect]
     Active Substance: HYDROXYCHLOROQUINE
     Indication: Rheumatoid arthritis
     Dosage: ROUTE OF ADMINISTRATION: UNKNOWN
  35. HYDROXYCHLOROQUINE [Suspect]
     Active Substance: HYDROXYCHLOROQUINE
     Dosage: ROUTE OF ADMINISTRATION: UNKNOWN
  36. HYDROXYCHLOROQUINE [Suspect]
     Active Substance: HYDROXYCHLOROQUINE
     Route: 048
  37. HYDROXYCHLOROQUINE [Suspect]
     Active Substance: HYDROXYCHLOROQUINE
     Dosage: ROUTE OF ADMINISTRATION: UNKNOWN
  38. HYDROXYCHLOROQUINE [Suspect]
     Active Substance: HYDROXYCHLOROQUINE
     Dosage: ROUTE OF ADMINISTRATION: UNKNOWN
  39. HYDROXYCHLOROQUINE [Suspect]
     Active Substance: HYDROXYCHLOROQUINE
     Route: 048
  40. HYDROXYCHLOROQUINE [Suspect]
     Active Substance: HYDROXYCHLOROQUINE
     Dosage: ROUTE OF ADMINISTRATION: UNKNOWN
  41. HYRIMOZ [Suspect]
     Active Substance: ADALIMUMAB-ADAZ
     Indication: Rheumatoid arthritis
     Dosage: ROUTE OF ADMINISTRATION: UNKNOWN
  42. HYRIMOZ [Suspect]
     Active Substance: ADALIMUMAB-ADAZ
     Indication: Migraine
  43. HYRIMOZ [Suspect]
     Active Substance: ADALIMUMAB-ADAZ
     Route: 058
  44. HYRIMOZ [Suspect]
     Active Substance: ADALIMUMAB-ADAZ
     Dosage: ROUTE OF ADMINISTRATION: UNKNOWN
  45. HYRIMOZ [Suspect]
     Active Substance: ADALIMUMAB-ADAZ
     Route: 058
  46. HYRIMOZ [Suspect]
     Active Substance: ADALIMUMAB-ADAZ
     Route: 058
  47. HYRIMOZ [Suspect]
     Active Substance: ADALIMUMAB-ADAZ
     Dosage: ROUTE OF ADMINISTRATION: UNKNOWN
  48. HYRIMOZ [Suspect]
     Active Substance: ADALIMUMAB-ADAZ
     Dosage: ROUTE OF ADMINISTRATION: UNKNOWN
  49. HYRIMOZ [Suspect]
     Active Substance: ADALIMUMAB-ADAZ
     Dosage: ROUTE OF ADMINISTRATION: UNKNOWN
  50. HYRIMOZ [Suspect]
     Active Substance: ADALIMUMAB-ADAZ
     Dosage: ROUTE OF ADMINISTRATION: UNKNOWN
  51. LAMOTRIGINE [Suspect]
     Active Substance: LAMOTRIGINE
     Indication: Product used for unknown indication
     Dosage: ROUTE OF ADMINISTRATION: UNKNOWN
  52. LAMOTRIGINE [Suspect]
     Active Substance: LAMOTRIGINE
     Dosage: ROUTE OF ADMINISTRATION: UNKNOWN
  53. LAMOTRIGINE [Suspect]
     Active Substance: LAMOTRIGINE
     Route: 048
  54. LAMOTRIGINE [Suspect]
     Active Substance: LAMOTRIGINE
     Dosage: ROUTE OF ADMINISTRATION: UNKNOWN
  55. LAMOTRIGINE [Suspect]
     Active Substance: LAMOTRIGINE
     Route: 048
  56. LAMOTRIGINE [Suspect]
     Active Substance: LAMOTRIGINE
     Dosage: ROUTE OF ADMINISTRATION: UNKNOWN
  57. LAMOTRIGINE [Suspect]
     Active Substance: LAMOTRIGINE
     Route: 048
  58. LAMOTRIGINE [Suspect]
     Active Substance: LAMOTRIGINE
     Dosage: ROUTE OF ADMINISTRATION: UNKNOWN
  59. LAMOTRIGINE [Suspect]
     Active Substance: LAMOTRIGINE
     Dosage: ROUTE OF ADMINISTRATION: UNKNOWN
  60. LEVOMILNACIPRAN [Suspect]
     Active Substance: LEVOMILNACIPRAN
     Indication: Product used for unknown indication
     Dosage: ROUTE OF ADMINISTRATION: UNKNOWN
  61. LEVOMILNACIPRAN [Suspect]
     Active Substance: LEVOMILNACIPRAN
     Dosage: ROUTE OF ADMINISTRATION: UNKNOWN
  62. METHOTREXATE [Suspect]
     Active Substance: METHOTREXATE
     Indication: Rheumatoid arthritis
     Dosage: ROUTE OF ADMINISTRATION: UNKNOWN
  63. METHOTREXATE [Suspect]
     Active Substance: METHOTREXATE
     Dosage: ROUTE OF ADMINISTRATION: UNKNOWN
  64. METHOTREXATE [Suspect]
     Active Substance: METHOTREXATE
     Route: 048
  65. METHOTREXATE [Suspect]
     Active Substance: METHOTREXATE
     Dosage: ROUTE OF ADMINISTRATION: UNKNOWN
  66. METHOTREXATE [Suspect]
     Active Substance: METHOTREXATE
     Dosage: ROUTE OF ADMINISTRATION: UNKNOWN
  67. METHOTREXATE [Suspect]
     Active Substance: METHOTREXATE
     Route: 048
  68. METHOTREXATE [Suspect]
     Active Substance: METHOTREXATE
     Dosage: ROUTE OF ADMINISTRATION: UNKNOWN
  69. METHOTREXATE [Suspect]
     Active Substance: METHOTREXATE
     Dosage: ROUTE OF ADMINISTRATION: UNKNOWN
  70. METHOTREXATE [Suspect]
     Active Substance: METHOTREXATE
     Route: 048
  71. METHOTREXATE [Suspect]
     Active Substance: METHOTREXATE
     Route: 048
  72. ORENCIA [Suspect]
     Active Substance: ABATACEPT
     Indication: Rheumatoid arthritis
     Dosage: ROUTE OF ADMINISTRATION: UNKNOWN
  73. ORENCIA [Suspect]
     Active Substance: ABATACEPT
     Dosage: ROUTE OF ADMINISTRATION: INTRAVENOUS BOLUS
  74. ORENCIA [Suspect]
     Active Substance: ABATACEPT
     Dosage: ROUTE OF ADMINISTRATION: UNKNOWN
  75. OTEZLA [Suspect]
     Active Substance: APREMILAST
     Indication: Product used for unknown indication
     Dosage: ROUTE OF ADMINISTRATION: UNKNOWN
  76. OTEZLA [Suspect]
     Active Substance: APREMILAST
     Dosage: ROUTE OF ADMINISTRATION: UNKNOWN
  77. OTEZLA [Suspect]
     Active Substance: APREMILAST
     Dosage: ROUTE OF ADMINISTRATION: UNKNOWN
  78. OXYCODONE [Suspect]
     Active Substance: OXYCODONE
     Indication: Product used for unknown indication
     Dosage: ROUTE OF ADMINISTRATION: UNKNOWN
  79. PHENYLEPHRINE HYDROCHLORIDE [Suspect]
     Active Substance: PHENYLEPHRINE HYDROCHLORIDE
     Indication: Rheumatoid arthritis
  80. PHENYLEPHRINE HYDROCHLORIDE [Suspect]
     Active Substance: PHENYLEPHRINE HYDROCHLORIDE
     Dosage: ROUTE OF ADMINISTRATION: UNKNOWN
  81. PHOSPHORUS [Suspect]
     Active Substance: PHOSPHORUS
     Indication: Rheumatoid arthritis
     Dosage: ROUTE OF ADMINISTRATION: UNKNOWN
  82. PHOSPHORUS [Suspect]
     Active Substance: PHOSPHORUS
     Indication: Product used for unknown indication
  83. PHOSPHORUS [Suspect]
     Active Substance: PHOSPHORUS
     Dosage: ROUTE OF ADMINISTRATION: UNKNOWN
  84. RAMIPRIL [Suspect]
     Active Substance: RAMIPRIL
     Indication: Rheumatoid arthritis
     Dosage: ROUTE OF ADMINISTRATION: UNKNOWN
  85. RAMIPRIL [Suspect]
     Active Substance: RAMIPRIL
     Dosage: ROUTE OF ADMINISTRATION: INTRAVENOUS BOLUS
  86. RAMIPRIL [Suspect]
     Active Substance: RAMIPRIL
     Route: 016
  87. RAMIPRIL [Suspect]
     Active Substance: RAMIPRIL
     Dosage: ROUTE OF ADMINISTRATION: UNKNOWN
  88. RANITIDINE HYDROCHLORIDE [Suspect]
     Active Substance: RANITIDINE HYDROCHLORIDE
     Indication: Rheumatoid arthritis
     Dosage: ROUTE OF ADMINISTRATION: UNKNOWN
  89. RANITIDINE HYDROCHLORIDE [Suspect]
     Active Substance: RANITIDINE HYDROCHLORIDE
     Dosage: ROUTE OF ADMINISTRATION: UNKNOWN
  90. RANITIDINE HYDROCHLORIDE [Suspect]
     Active Substance: RANITIDINE HYDROCHLORIDE
     Dosage: ROUTE OF ADMINISTRATION: UNKNOWN
  91. RANITIDINE HYDROCHLORIDE [Suspect]
     Active Substance: RANITIDINE HYDROCHLORIDE
     Dosage: ROUTE OF ADMINISTRATION: UNKNOWN
  92. RANITIDINE HYDROCHLORIDE [Suspect]
     Active Substance: RANITIDINE HYDROCHLORIDE
     Route: 058
  93. RANITIDINE HYDROCHLORIDE [Suspect]
     Active Substance: RANITIDINE HYDROCHLORIDE
     Dosage: ROUTE OF ADMINISTRATION: INTRAVENOUS BOLUS
  94. RANITIDINE HYDROCHLORIDE [Suspect]
     Active Substance: RANITIDINE HYDROCHLORIDE
     Dosage: ROUTE OF ADMINISTRATION: UNKNOWN
  95. RANITIDINE HYDROCHLORIDE [Suspect]
     Active Substance: RANITIDINE HYDROCHLORIDE
     Dosage: ROUTE OF ADMINISTRATION: UNKNOWN
  96. RITUXIMAB [Suspect]
     Active Substance: RITUXIMAB
     Indication: Rheumatoid arthritis
     Dosage: ROUTE OF ADMINISTRATION: INTRAVENOUS BOLUS
  97. RITUXIMAB [Suspect]
     Active Substance: RITUXIMAB
     Route: 043
  98. RITUXIMAB [Suspect]
     Active Substance: RITUXIMAB
     Route: 058
  99. RITUXIMAB [Suspect]
     Active Substance: RITUXIMAB
  100. SIMPONI [Suspect]
     Active Substance: GOLIMUMAB
     Indication: Rheumatoid arthritis
     Dosage: DOSE FORM: SOLUTION SUBCUTANEOUS
  101. SIRUKUMAB [Suspect]
     Active Substance: SIRUKUMAB
     Indication: Rheumatoid arthritis
     Dosage: ROUTE OF ADMINISTRATION: UNKNOWN
  102. SIRUKUMAB [Suspect]
     Active Substance: SIRUKUMAB
     Indication: Product used for unknown indication
  103. SIRUKUMAB [Suspect]
     Active Substance: SIRUKUMAB
     Dosage: ROUTE OF ADMINISTRATION: UNKNOWN
  104. ACETAMINOPHEN AND CODEINE [Suspect]
     Active Substance: ACETAMINOPHEN\CODEINE PHOSPHATE
     Indication: Rheumatoid arthritis
     Dosage: ROUTE OF ADMINISTRATION: UNKNOWN
  105. ACTEMRA [Suspect]
     Active Substance: TOCILIZUMAB
     Indication: Rheumatoid arthritis
     Dosage: ROUTE OF ADMINISTRATION: UNKNOWN
  106. ACTEMRA [Suspect]
     Active Substance: TOCILIZUMAB
     Route: 058
  107. ACTEMRA [Suspect]
     Active Substance: TOCILIZUMAB
     Dosage: ROUTE OF ADMINISTRATION: UNKNOWN
  108. ACTEMRA [Suspect]
     Active Substance: TOCILIZUMAB
     Dosage: ROUTE OF ADMINISTRATION: UNKNOWN
  109. ACTEMRA [Suspect]
     Active Substance: TOCILIZUMAB
     Dosage: ROUTE OF ADMINISTRATION: UNKNOWN
  110. ACTEMRA [Suspect]
     Active Substance: TOCILIZUMAB
     Dosage: ROUTE OF ADMINISTRATION: UNKNOWN
  111. ACTEMRA [Suspect]
     Active Substance: TOCILIZUMAB
     Dosage: ROUTE OF ADMINISTRATION: UNKNOWN
  112. ACTEMRA [Suspect]
     Active Substance: TOCILIZUMAB
     Dosage: ROUTE OF ADMINISTRATION: UNKNOWN
  113. ACTEMRA [Suspect]
     Active Substance: TOCILIZUMAB
     Dosage: ROUTE OF ADMINISTRATION: UNKNOWN
  114. ACTEMRA [Suspect]
     Active Substance: TOCILIZUMAB
     Dosage: ROUTE OF ADMINISTRATION: UNKNOWN
  115. ACTEMRA [Suspect]
     Active Substance: TOCILIZUMAB
     Dosage: ROUTE OF ADMINISTRATION: UNKNOWN
  116. ACTEMRA [Suspect]
     Active Substance: TOCILIZUMAB
     Dosage: ROUTE OF ADMINISTRATION: UNKNOWN
  117. ACTEMRA [Suspect]
     Active Substance: TOCILIZUMAB
     Dosage: ROUTE OF ADMINISTRATION: UNKNOWN
  118. ACTEMRA [Suspect]
     Active Substance: TOCILIZUMAB
     Dosage: ROUTE OF ADMINISTRATION: UNKNOWN
  119. AIMOVIG [Suspect]
     Active Substance: ERENUMAB-AOOE
     Indication: Rheumatoid arthritis
     Dosage: DOSE FORM: SOLUTION
  120. AIMOVIG [Suspect]
     Active Substance: ERENUMAB-AOOE
     Indication: Migraine
  121. AZATHIOPRINE [Suspect]
     Active Substance: AZATHIOPRINE
     Indication: Product used for unknown indication
     Dosage: ROUTE OF ADMINISTRATION: UNKNOWN
  122. CANDESARTAN [Suspect]
     Active Substance: CANDESARTAN
     Indication: Migraine
  123. CANDESARTAN [Suspect]
     Active Substance: CANDESARTAN
     Indication: Rheumatoid arthritis
  124. CETIRIZINE [Suspect]
     Active Substance: CETIRIZINE HYDROCHLORIDE
     Indication: Rheumatoid arthritis
     Dosage: ROUTE OF ADMINISTRATION: UNKNOWN
  125. CETIRIZINE [Suspect]
     Active Substance: CETIRIZINE HYDROCHLORIDE
     Route: 048
  126. CETIRIZINE [Suspect]
     Active Substance: CETIRIZINE HYDROCHLORIDE
     Dosage: ROUTE OF ADMINISTRATION: UNKNOWN
  127. CETIRIZINE [Suspect]
     Active Substance: CETIRIZINE HYDROCHLORIDE
     Route: 048
  128. CETIRIZINE [Suspect]
     Active Substance: CETIRIZINE HYDROCHLORIDE
     Route: 048
  129. CETIRIZINE [Suspect]
     Active Substance: CETIRIZINE HYDROCHLORIDE
     Route: 048
  130. CETIRIZINE [Suspect]
     Active Substance: CETIRIZINE HYDROCHLORIDE
     Dosage: ROUTE OF ADMINISTRATION: UNKNOWN
  131. CETIRIZINE [Suspect]
     Active Substance: CETIRIZINE HYDROCHLORIDE
     Dosage: ROUTE OF ADMINISTRATION: UNKNOWN
  132. CETIRIZINE [Suspect]
     Active Substance: CETIRIZINE HYDROCHLORIDE
     Route: 048
  133. CETIRIZINE [Suspect]
     Active Substance: CETIRIZINE HYDROCHLORIDE
     Dosage: ROUTE OF ADMINISTRATION: UNKNOWN
  134. CETIRIZINE [Suspect]
     Active Substance: CETIRIZINE HYDROCHLORIDE
     Route: 048
  135. CETIRIZINE [Suspect]
     Active Substance: CETIRIZINE HYDROCHLORIDE
     Route: 048
  136. CETIRIZINE [Suspect]
     Active Substance: CETIRIZINE HYDROCHLORIDE
     Route: 048
  137. CETIRIZINE [Suspect]
     Active Substance: CETIRIZINE HYDROCHLORIDE
     Dosage: ROUTE OF ADMINISTRATION: UNKNOWN
  138. DESOXIMETASONE [Suspect]
     Active Substance: DESOXIMETASONE
     Indication: Rheumatoid arthritis
  139. DESOXIMETASONE [Suspect]
     Active Substance: DESOXIMETASONE
     Dosage: ROUTE OF ADMINISTRATION: UNKNOWN
  140. DESOXIMETASONE [Suspect]
     Active Substance: DESOXIMETASONE
     Route: 048
  141. DESOXIMETASONE [Suspect]
     Active Substance: DESOXIMETASONE
     Dosage: ROUTE OF ADMINISTRATION: UNKNOWN
  142. DESOXIMETASONE [Suspect]
     Active Substance: DESOXIMETASONE
     Dosage: ROUTE OF ADMINISTRATION: UNKNOWN
  143. DESOXIMETASONE [Suspect]
     Active Substance: DESOXIMETASONE
     Dosage: ROUTE OF ADMINISTRATION: UNKNOWN
  144. FLUMETHASONE PIVALATE [Suspect]
     Active Substance: FLUMETHASONE PIVALATE
     Indication: Product used for unknown indication
  145. FLUMETHASONE PIVALATE [Suspect]
     Active Substance: FLUMETHASONE PIVALATE
     Route: 058
  146. FLUMETHASONE PIVALATE [Suspect]
     Active Substance: FLUMETHASONE PIVALATE
     Route: 058
  147. FLUMETHASONE PIVALATE [Suspect]
     Active Substance: FLUMETHASONE PIVALATE
     Dosage: ROUTE OF ADMINISTRATION: UNKNOWN
  148. FOSAMAX [Suspect]
     Active Substance: ALENDRONATE SODIUM
     Indication: Rheumatoid arthritis
     Dosage: ROUTE OF ADMINISTRATION: UNKNOWN
  149. ERGOCALCIFEROL [Suspect]
     Active Substance: ERGOCALCIFEROL
     Indication: Product used for unknown indication
     Dosage: ROUTE OF ADMINISTRATION: UNKNOWN
  150. ERGOCALCIFEROL [Suspect]
     Active Substance: ERGOCALCIFEROL
     Dosage: ROUTE OF ADMINISTRATION: UNKNOWN
  151. GOLD SODIUM THIOMALATE [Suspect]
     Active Substance: GOLD SODIUM THIOMALATE
     Indication: Product used for unknown indication
  152. GOLD SODIUM THIOMALATE [Suspect]
     Active Substance: GOLD SODIUM THIOMALATE
     Dosage: ROUTE OF ADMINISTRATION: UNKNOWN
  153. HYDROMORPHONE [Suspect]
     Active Substance: HYDROMORPHONE
     Indication: Rheumatoid arthritis
     Dosage: ROUTE OF ADMINISTRATION: UNKNOWN
  154. HYDROMORPHONE [Suspect]
     Active Substance: HYDROMORPHONE
     Indication: Product used for unknown indication
  155. HYDROMORPHONE [Suspect]
     Active Substance: HYDROMORPHONE
     Dosage: ROUTE OF ADMINISTRATION: UNKNOWN
  156. INFLIXIMAB [Suspect]
     Active Substance: INFLIXIMAB
     Indication: Rheumatoid arthritis
     Dosage: ROUTE OF ADMINISTRATION: UNKNOWN
  157. INFLIXIMAB [Suspect]
     Active Substance: INFLIXIMAB
     Dosage: ROUTE OF ADMINISTRATION: INTRAVENOUS BOLUS
  158. KEVZARA [Suspect]
     Active Substance: SARILUMAB
     Indication: Rheumatoid arthritis
     Dosage: ROUTE OF ADMINISTRATION: UNKNOWN
  159. KEVZARA [Suspect]
     Active Substance: SARILUMAB
     Dosage: ROUTE OF ADMINISTRATION: UNKNOWN
  160. MAGNESIUM [Suspect]
     Active Substance: MAGNESIUM
     Indication: Product used for unknown indication
     Dosage: ROUTE OF ADMINISTRATION: UNKNOWN
  161. MAGNESIUM [Suspect]
     Active Substance: MAGNESIUM
     Dosage: ROUTE OF ADMINISTRATION: UNKNOWN
  162. METHYLPREDNISOLONE ACETATE [Suspect]
     Active Substance: METHYLPREDNISOLONE ACETATE
     Indication: Product used for unknown indication
     Dosage: ROUTE OF ADMINISTRATION: UNKNOWN
  163. METHYLPREDNISOLONE ACETATE [Suspect]
     Active Substance: METHYLPREDNISOLONE ACETATE
     Dosage: ROUTE OF ADMINISTRATION: UNKNOWN
  164. MINOCYCLINE HYDROCHLORIDE [Suspect]
     Active Substance: MINOCYCLINE HYDROCHLORIDE
     Indication: Product used for unknown indication
     Dosage: ROUTE OF ADMINISTRATION: UNKNOWN
  165. MINOCYCLINE HYDROCHLORIDE [Suspect]
     Active Substance: MINOCYCLINE HYDROCHLORIDE
     Dosage: ROUTE OF ADMINISTRATION: UNKNOWN
  166. MYRBETRIQ [Suspect]
     Active Substance: MIRABEGRON
     Indication: Product used for unknown indication
     Dosage: ROUTE OF ADMINISTRATION: UNKNOWN
  167. MYRBETRIQ [Suspect]
     Active Substance: MIRABEGRON
     Dosage: ROUTE OF ADMINISTRATION: UNKNOWN
  168. MYRBETRIQ [Suspect]
     Active Substance: MIRABEGRON
     Route: 048
  169. MYRBETRIQ [Suspect]
     Active Substance: MIRABEGRON
     Dosage: ROUTE OF ADMINISTRATION: UNKNOWN
  170. MYRBETRIQ [Suspect]
     Active Substance: MIRABEGRON
     Dosage: ROUTE OF ADMINISTRATION: UNKNOWN
  171. MYRBETRIQ [Suspect]
     Active Substance: MIRABEGRON
     Dosage: ROUTE OF ADMINISTRATION: UNKNOWN
  172. MYRBETRIQ [Suspect]
     Active Substance: MIRABEGRON
     Dosage: ROUTE OF ADMINISTRATION: UNKNOWN
  173. NAPROXEN [Suspect]
     Active Substance: NAPROXEN
     Indication: Rheumatoid arthritis
     Dosage: ROUTE OF ADMINISTRATION: UNKNOWN
  174. NAPROXEN [Suspect]
     Active Substance: NAPROXEN
     Dosage: ROUTE OF ADMINISTRATION: UNKNOWN
  175. NUCALA [Suspect]
     Active Substance: MEPOLIZUMAB
     Indication: Product used for unknown indication
     Dosage: ROUTE OF ADMINISTRATION: UNKNOWN
  176. PHTHALYLSULFATHIAZOLE [Suspect]
     Active Substance: PHTHALYLSULFATHIAZOLE
     Indication: Rheumatoid arthritis
     Dosage: ROUTE OF ADMINISTRATION: UNKNOWN
  177. PHTHALYLSULFATHIAZOLE [Suspect]
     Active Substance: PHTHALYLSULFATHIAZOLE
     Dosage: ROUTE OF ADMINISTRATION: UNKNOWN
  178. PHTHALYLSULFATHIAZOLE [Suspect]
     Active Substance: PHTHALYLSULFATHIAZOLE
     Dosage: ROUTE OF ADMINISTRATION: UNKNOWN
  179. PHTHALYLSULFATHIAZOLE [Suspect]
     Active Substance: PHTHALYLSULFATHIAZOLE
     Route: 048
  180. PHTHALYLSULFATHIAZOLE [Suspect]
     Active Substance: PHTHALYLSULFATHIAZOLE
     Dosage: ROUTE OF ADMINISTRATION: UNKNOWN
  181. PHTHALYLSULFATHIAZOLE [Suspect]
     Active Substance: PHTHALYLSULFATHIAZOLE
     Route: 048
  182. PREDNISONE [Suspect]
     Active Substance: PREDNISONE
     Indication: Rheumatoid arthritis
  183. PREDNISONE [Suspect]
     Active Substance: PREDNISONE
     Dosage: ROUTE OF ADMINISTRATION: UNKNOWN
  184. PREDNISONE [Suspect]
     Active Substance: PREDNISONE
     Dosage: ROUTE OF ADMINISTRATION: UNKNOWN
  185. PREDNISONE [Suspect]
     Active Substance: PREDNISONE
     Dosage: ROUTE OF ADMINISTRATION: UNKNOWN
  186. PREDNISONE [Suspect]
     Active Substance: PREDNISONE
     Route: 048
  187. PREDNISONE [Suspect]
     Active Substance: PREDNISONE
     Route: 048
  188. PSEUDOEPHEDRINE HYDROCHLORIDE [Suspect]
     Active Substance: PSEUDOEPHEDRINE HYDROCHLORIDE
     Indication: Rheumatoid arthritis
     Dosage: ROUTE OF ADMINISTRATION: UNKNOWN
  189. PSEUDOEPHEDRINE HYDROCHLORIDE [Suspect]
     Active Substance: PSEUDOEPHEDRINE HYDROCHLORIDE
     Dosage: ROUTE OF ADMINISTRATION: UNKNOWN
  190. PSEUDOEPHEDRINE HYDROCHLORIDE [Suspect]
     Active Substance: PSEUDOEPHEDRINE HYDROCHLORIDE
     Dosage: ROUTE OF ADMINISTRATION: UNKNOWN
  191. PSEUDOEPHEDRINE HYDROCHLORIDE [Suspect]
     Active Substance: PSEUDOEPHEDRINE HYDROCHLORIDE
     Dosage: ROUTE OF ADMINISTRATION: UNKNOWN
  192. PSEUDOEPHEDRINE HYDROCHLORIDE [Suspect]
     Active Substance: PSEUDOEPHEDRINE HYDROCHLORIDE
     Dosage: ROUTE OF ADMINISTRATION: UNKNOWN
  193. PSEUDOEPHEDRINE HYDROCHLORIDE [Suspect]
     Active Substance: PSEUDOEPHEDRINE HYDROCHLORIDE
     Dosage: ROUTE OF ADMINISTRATION: UNKNOWN
  194. LEFLUNOMIDE [Suspect]
     Active Substance: LEFLUNOMIDE
     Indication: Rheumatoid arthritis
     Dosage: ROUTE OF ADMINISTRATION: UNKNOWN
  195. LEFLUNOMIDE [Suspect]
     Active Substance: LEFLUNOMIDE
     Dosage: ROUTE OF ADMINISTRATION: UNKNOWN
  196. LEFLUNOMIDE [Suspect]
     Active Substance: LEFLUNOMIDE
     Route: 048
  197. LEFLUNOMIDE [Suspect]
     Active Substance: LEFLUNOMIDE
     Route: 048
  198. LEFLUNOMIDE [Suspect]
     Active Substance: LEFLUNOMIDE
     Dosage: ROUTE OF ADMINISTRATION: UNKNOWN
  199. LEFLUNOMIDE [Suspect]
     Active Substance: LEFLUNOMIDE
     Dosage: ROUTE OF ADMINISTRATION: UNKNOWN
  200. LEFLUNOMIDE [Suspect]
     Active Substance: LEFLUNOMIDE
     Route: 048
  201. LEFLUNOMIDE [Suspect]
     Active Substance: LEFLUNOMIDE
     Route: 048
  202. LEFLUNOMIDE [Suspect]
     Active Substance: LEFLUNOMIDE
     Dosage: ROUTE OF ADMINISTRATION: UNKNOWN
  203. SULFASALAZINE [Suspect]
     Active Substance: SULFASALAZINE
     Indication: Rheumatoid arthritis
     Dosage: ROUTE OF ADMINISTRATION: UNKNOWN
  204. SULFASALAZINE [Suspect]
     Active Substance: SULFASALAZINE
     Dosage: ROUTE OF ADMINISTRATION: UNKNOWN
  205. SULFASALAZINE [Suspect]
     Active Substance: SULFASALAZINE
     Dosage: ROUTE OF ADMINISTRATION: UNKNOWN
  206. SULFASALAZINE [Suspect]
     Active Substance: SULFASALAZINE
     Route: 048
  207. SULFASALAZINE [Suspect]
     Active Substance: SULFASALAZINE
     Dosage: ROUTE OF ADMINISTRATION: UNKNOWN
  208. SULFASALAZINE [Suspect]
     Active Substance: SULFASALAZINE
     Dosage: ROUTE OF ADMINISTRATION: UNKNOWN
  209. SULFASALAZINE [Suspect]
     Active Substance: SULFASALAZINE
     Dosage: ROUTE OF ADMINISTRATION: UNKNOWN
  210. SULFASALAZINE [Suspect]
     Active Substance: SULFASALAZINE
     Dosage: ROUTE OF ADMINISTRATION: UNKNOWN
  211. SULFASALAZINE [Suspect]
     Active Substance: SULFASALAZINE
     Dosage: ROUTE OF ADMINISTRATION: UNKNOWN
  212. SULFASALAZINE [Suspect]
     Active Substance: SULFASALAZINE
     Dosage: ROUTE OF ADMINISTRATION: UNKNOWN
  213. SULFASALAZINE [Suspect]
     Active Substance: SULFASALAZINE
     Dosage: ROUTE OF ADMINISTRATION: UNKNOWN
  214. SULFASALAZINE [Suspect]
     Active Substance: SULFASALAZINE
     Dosage: ROUTE OF ADMINISTRATION: UNKNOWN
  215. SULFASALAZINE [Suspect]
     Active Substance: SULFASALAZINE
     Dosage: ROUTE OF ADMINISTRATION: UNKNOWN
  216. SULFASALAZINE [Suspect]
     Active Substance: SULFASALAZINE
     Route: 048
  217. SULFASALAZINE [Suspect]
     Active Substance: SULFASALAZINE
     Dosage: ROUTE OF ADMINISTRATION: UNKNOWN
  218. SULFASALAZINE [Suspect]
     Active Substance: SULFASALAZINE
     Route: 058
  219. SULFASALAZINE [Suspect]
     Active Substance: SULFASALAZINE
     Dosage: ROUTE OF ADMINISTRATION: UNKNOWN
  220. SULFASALAZINE [Suspect]
     Active Substance: SULFASALAZINE
     Dosage: ROUTE OF ADMINISTRATION: UNKNOWN
  221. SULFASALAZINE [Suspect]
     Active Substance: SULFASALAZINE
     Dosage: ROUTE OF ADMINISTRATION: UNKNOWN
  222. SULFASALAZINE [Suspect]
     Active Substance: SULFASALAZINE
     Dosage: ROUTE OF ADMINISTRATION: UNKNOWN
  223. SULFASALAZINE [Suspect]
     Active Substance: SULFASALAZINE
     Dosage: ROUTE OF ADMINISTRATION: UNKNOWN
  224. SULFASALAZINE [Suspect]
     Active Substance: SULFASALAZINE
     Dosage: ROUTE OF ADMINISTRATION: UNKNOWN
  225. SULFASALAZINE [Suspect]
     Active Substance: SULFASALAZINE
     Route: 048
  226. SULFASALAZINE [Suspect]
     Active Substance: SULFASALAZINE
     Dosage: ROUTE OF ADMINISTRATION: UNKNOWN
  227. SULFASALAZINE [Suspect]
     Active Substance: SULFASALAZINE
     Dosage: ROUTE OF ADMINISTRATION: UNKNOWN
  228. SULFASALAZINE [Suspect]
     Active Substance: SULFASALAZINE
     Route: 048
  229. SULFASALAZINE [Suspect]
     Active Substance: SULFASALAZINE
     Dosage: ROUTE OF ADMINISTRATION: UNKNOWN
  230. SULFASALAZINE [Suspect]
     Active Substance: SULFASALAZINE
     Route: 048
  231. SULFASALAZINE [Suspect]
     Active Substance: SULFASALAZINE
     Route: 048
  232. SULFASALAZINE [Suspect]
     Active Substance: SULFASALAZINE
     Route: 048
  233. SULFASALAZINE [Suspect]
     Active Substance: SULFASALAZINE
     Route: 048
  234. SULFASALAZINE [Suspect]
     Active Substance: SULFASALAZINE
     Route: 048
  235. SULFASALAZINE [Suspect]
     Active Substance: SULFASALAZINE
     Route: 048
  236. SULFASALAZINE [Suspect]
     Active Substance: SULFASALAZINE
     Dosage: ROUTE OF ADMINISTRATION: UNKNOWN
  237. SULFASALAZINE [Suspect]
     Active Substance: SULFASALAZINE
     Route: 058
  238. SULFASALAZINE [Suspect]
     Active Substance: SULFASALAZINE
     Route: 048
  239. TRAMADOL HYDROCHLORIDE [Suspect]
     Active Substance: TRAMADOL HYDROCHLORIDE
     Indication: Product used for unknown indication
     Dosage: ROUTE OF ADMINISTRATION: UNKNOWN
  240. TRAMADOL HYDROCHLORIDE [Suspect]
     Active Substance: TRAMADOL HYDROCHLORIDE
     Dosage: ROUTE OF ADMINISTRATION: UNKNOWN
  241. VITAMIN C [Suspect]
     Active Substance: ASCORBIC ACID
     Indication: Product used for unknown indication
     Dosage: ROUTE OF ADMINISTRATION: UNKNOWN
  242. VITAMIN C [Suspect]
     Active Substance: ASCORBIC ACID
     Dosage: ROUTE OF ADMINISTRATION: UNKNOWN
  243. VITAMIN C [Suspect]
     Active Substance: ASCORBIC ACID
     Dosage: ROUTE OF ADMINISTRATION: UNKNOWN
  244. VITAMIN C [Suspect]
     Active Substance: ASCORBIC ACID
     Dosage: ROUTE OF ADMINISTRATION: UNKNOWN
  245. VITAMIN C [Suspect]
     Active Substance: ASCORBIC ACID
     Dosage: ROUTE OF ADMINISTRATION: UNKNOWN
  246. ACETAMINOPHEN AND CODEINE [Suspect]
     Active Substance: ACETAMINOPHEN\CODEINE PHOSPHATE
     Indication: Rheumatoid arthritis
     Dosage: ROUTE OF ADMINISTRATION: UNKNOWN
  247. AIMOVIG [Suspect]
     Active Substance: ERENUMAB-AOOE
     Indication: Rheumatoid arthritis
     Dosage: ROUTE OF ADMINISTRATION: UNKNOWN
  248. AIMOVIG [Suspect]
     Active Substance: ERENUMAB-AOOE
     Indication: Migraine
  249. MYRBETRIQ [Suspect]
     Active Substance: MIRABEGRON
     Indication: Product used for unknown indication
     Dosage: DOSE FORM: EXTENDED-RELEASE TABLET?ROUTE OF ADMINISTRATION: UNKNOWN
  250. RITUXIMAB [Suspect]
     Active Substance: RITUXIMAB
     Indication: Rheumatoid arthritis
     Dosage: ROUTE OF ADMINISTRATION: INTRAVENOUS BOLUS
  251. TOPIRAMATE [Suspect]
     Active Substance: TOPIRAMATE
     Indication: Migraine
     Dosage: ROUTE OF ADMINISTRATION: UNKNOWN
  252. TOPIRAMATE [Suspect]
     Active Substance: TOPIRAMATE
     Dosage: ROUTE OF ADMINISTRATION: UNKNOWN
  253. TOPIRAMATE [Suspect]
     Active Substance: TOPIRAMATE
     Dosage: ROUTE OF ADMINISTRATION: UNKNOWN
  254. TOPIRAMATE [Suspect]
     Active Substance: TOPIRAMATE
     Dosage: ROUTE OF ADMINISTRATION: UNKNOWN
  255. TOPIRAMATE [Suspect]
     Active Substance: TOPIRAMATE
     Dosage: ROUTE OF ADMINISTRATION: UNKNOWN
  256. TOPIRAMATE [Suspect]
     Active Substance: TOPIRAMATE
     Dosage: ROUTE OF ADMINISTRATION: UNKNOWN
  257. TOPIRAMATE [Suspect]
     Active Substance: TOPIRAMATE
     Dosage: ROUTE OF ADMINISTRATION: UNKNOWN
  258. TOPIRAMATE [Suspect]
     Active Substance: TOPIRAMATE
     Dosage: ROUTE OF ADMINISTRATION: UNKNOWN
  259. TOPIRAMATE [Suspect]
     Active Substance: TOPIRAMATE
     Dosage: ROUTE OF ADMINISTRATION: UNKNOWN
  260. TOPIRAMATE [Suspect]
     Active Substance: TOPIRAMATE
     Dosage: ROUTE OF ADMINISTRATION: UNKNOWN
  261. TOPIRAMATE [Suspect]
     Active Substance: TOPIRAMATE
     Dosage: ROUTE OF ADMINISTRATION: UNKNOWN
  262. TOPIRAMATE [Suspect]
     Active Substance: TOPIRAMATE
     Dosage: ROUTE OF ADMINISTRATION: UNKNOWN
  263. TRAZODONE [Suspect]
     Active Substance: TRAZODONE HYDROCHLORIDE
     Indication: Product used for unknown indication
     Dosage: ROUTE OF ADMINISTRATION: UNKNOWN
  264. TRAZODONE [Suspect]
     Active Substance: TRAZODONE HYDROCHLORIDE
     Dosage: ROUTE OF ADMINISTRATION: UNKNOWN
  265. TRAZODONE [Suspect]
     Active Substance: TRAZODONE HYDROCHLORIDE
     Dosage: ROUTE OF ADMINISTRATION: UNKNOWN
  266. TRAZODONE [Suspect]
     Active Substance: TRAZODONE HYDROCHLORIDE
     Dosage: ROUTE OF ADMINISTRATION: UNKNOWN
  267. TRETINOIN [Suspect]
     Active Substance: TRETINOIN
     Indication: Product used for unknown indication
     Dosage: ROUTE OF ADMINISTRATION: UNKNOWN
  268. TRETINOIN [Suspect]
     Active Substance: TRETINOIN
     Dosage: ROUTE OF ADMINISTRATION: UNKNOWN
  269. TRIAMCINOLONE [Suspect]
     Active Substance: TRIAMCINOLONE
     Indication: Product used for unknown indication
     Dosage: ROUTE OF ADMINISTRATION: UNKNOWN
  270. TRIAMCINOLONE [Suspect]
     Active Substance: TRIAMCINOLONE
     Dosage: ROUTE OF ADMINISTRATION: UNKNOWN
  271. CELECOXIB [Suspect]
     Active Substance: CELECOXIB
     Indication: Product used for unknown indication
     Dosage: ROUTE OF ADMINISTRATION: UNKNOWN
  272. FOSAMAX [Suspect]
     Active Substance: ALENDRONATE SODIUM
     Indication: Rheumatoid arthritis
     Dosage: ROUTE OF ADMINISTRATION: UNKNOWN
  273. HYRIMOZ [Suspect]
     Active Substance: ADALIMUMAB-ADAZ
     Indication: Rheumatoid arthritis
     Dosage: DOSE FORM: SOLUTION SUBCUTANEOUS?ROUTE OF ADMINISTRATION: UNKNOWN
  274. HYRIMOZ [Suspect]
     Active Substance: ADALIMUMAB-ADAZ
     Indication: Migraine
  275. INFLIXIMAB [Suspect]
     Active Substance: INFLIXIMAB
     Indication: Rheumatoid arthritis
     Dosage: ROUTE OF ADMINISTRATION: INTRAVENOUS BOLUS
  276. LAMOTRIGINE [Suspect]
     Active Substance: LAMOTRIGINE
     Indication: Product used for unknown indication
  277. LEFLUNOMIDE [Suspect]
     Active Substance: LEFLUNOMIDE
     Indication: Rheumatoid arthritis
  278. SIMPONI [Suspect]
     Active Substance: GOLIMUMAB
     Indication: Rheumatoid arthritis
     Dosage: ROUTE OF ADMINISTRATION: UNKNOWN

REACTIONS (71)
  - Pneumonia [Fatal]
  - Paraesthesia [Fatal]
  - Anti-cyclic citrullinated peptide antibody positive [Fatal]
  - Treatment failure [Fatal]
  - Pericarditis [Fatal]
  - Rash [Fatal]
  - Rheumatoid arthritis [Fatal]
  - Diarrhoea [Fatal]
  - Stomatitis [Fatal]
  - Systemic lupus erythematosus [Fatal]
  - Asthenia [Fatal]
  - Gait inability [Fatal]
  - Fibromyalgia [Fatal]
  - Abdominal discomfort [Fatal]
  - Inflammation [Fatal]
  - Weight increased [Fatal]
  - Dizziness [Fatal]
  - Wheezing [Fatal]
  - Synovitis [Fatal]
  - Muscular weakness [Fatal]
  - Product quality issue [Fatal]
  - Injury [Fatal]
  - Taste disorder [Fatal]
  - Wound [Fatal]
  - Folliculitis [Fatal]
  - Live birth [Fatal]
  - Back injury [Fatal]
  - Pemphigus [Fatal]
  - Blepharospasm [Fatal]
  - Drug ineffective [Fatal]
  - Neck pain [Fatal]
  - Drug intolerance [Fatal]
  - Osteoarthritis [Fatal]
  - Confusional state [Fatal]
  - Maternal exposure during pregnancy [Fatal]
  - Urticaria [Fatal]
  - Peripheral venous disease [Fatal]
  - Product use in unapproved indication [Fatal]
  - Facet joint syndrome [Fatal]
  - Rheumatic fever [Fatal]
  - Wound infection [Fatal]
  - Pain [Fatal]
  - Type 2 diabetes mellitus [Fatal]
  - Breast cancer stage III [Fatal]
  - Blister [Fatal]
  - Swelling [Fatal]
  - Alopecia [Fatal]
  - Epilepsy [Fatal]
  - Arthralgia [Fatal]
  - Dry mouth [Fatal]
  - Bursitis [Fatal]
  - Abdominal pain upper [Fatal]
  - Sleep disorder [Fatal]
  - Therapeutic product effect decreased [Fatal]
  - Peripheral swelling [Fatal]
  - Therapeutic product effect incomplete [Fatal]
  - C-reactive protein increased [Fatal]
  - Contraindicated product administered [Fatal]
  - Gastrooesophageal reflux disease [Fatal]
  - Night sweats [Fatal]
  - Pain in extremity [Fatal]
  - Depression [Fatal]
  - Onychomadesis [Fatal]
  - Psoriatic arthropathy [Fatal]
  - Vomiting [Fatal]
  - Arthropathy [Fatal]
  - Product use issue [Fatal]
  - General physical health deterioration [Fatal]
  - Duodenal ulcer perforation [Fatal]
  - Drug hypersensitivity [Fatal]
  - Blood cholesterol increased [Fatal]
